FAERS Safety Report 9459570 (Version 1)
Quarter: 2013Q3

REPORT INFORMATION
  Report Type: Spontaneous
  Country: US (occurrence: US)
  Receive Date: 20130815
  Receipt Date: 20130815
  Transmission Date: 20140515
  Serious: Yes (Hospitalization)
  Sender: FDA-Public Use
  Company Number: US-ELI_LILLY_AND_COMPANY-US201308001243

PATIENT
  Sex: Female

DRUGS (5)
  1. CYMBALTA [Suspect]
     Indication: DEPRESSION
     Dosage: 20 MG, QD
     Route: 065
     Dates: start: 2011
  2. CYMBALTA [Suspect]
     Indication: STRESS
     Dosage: 30 MG, QD
     Route: 065
  3. OMEPRAZOLE [Concomitant]
     Indication: GASTROOESOPHAGEAL REFLUX DISEASE
     Dosage: UNK, UNKNOWN
     Route: 065
  4. SIMVASTATIN [Concomitant]
     Indication: BLOOD CHOLESTEROL INCREASED
     Dosage: UNK, UNKNOWN
     Route: 065
  5. ALCOHOL [Concomitant]

REACTIONS (10)
  - Loss of consciousness [Unknown]
  - Suicide attempt [Unknown]
  - Aggression [Unknown]
  - Heat stroke [Unknown]
  - Abnormal behaviour [Unknown]
  - Paraesthesia [Unknown]
  - Memory impairment [Unknown]
  - Bipolar disorder [Unknown]
  - Hyperhidrosis [Unknown]
  - Decreased appetite [Unknown]
